FAERS Safety Report 6617025-8 (Version None)
Quarter: 2010Q1

REPORT INFORMATION
  Report Type: 
  Country: None (occurrence: None)
  Receive Date: 20100306
  Receipt Date: 20100115
  Transmission Date: 20100710
  Serious: Yes (Hospitalization, Other)
  Sender: FDA-Public Use
  Company Number: US-JNJFOC-20091007051

PATIENT
  Sex: Female
  Weight: 67.13 kg

DRUGS (5)
  1. LEVAQUIN [Suspect]
     Indication: KIDNEY INFECTION
     Route: 048
     Dates: start: 20091003
  2. ZESTRIL [Concomitant]
     Indication: BLOOD PRESSURE
     Route: 048
     Dates: start: 19840101
  3. THYROID TAB [Concomitant]
     Indication: THYROID DISORDER
     Route: 048
  4. ATENOLOL [Concomitant]
     Indication: BLOOD PRESSURE
     Route: 048
     Dates: start: 19990101
  5. GLYBURIDE [Concomitant]
     Indication: DIABETES MELLITUS
     Route: 048
     Dates: start: 20000101

REACTIONS (3)
  - HEADACHE [None]
  - HYPERTENSION [None]
  - VOMITING [None]
